FAERS Safety Report 10513494 (Version 1)
Quarter: 2014Q4

REPORT INFORMATION
  Report Type: Spontaneous
  Country: FR (occurrence: FR)
  Receive Date: 20141013
  Receipt Date: 20141013
  Transmission Date: 20150528
  Serious: Yes (Other)
  Sender: FDA-Public Use
  Company Number: FR-009507513-1410FRA004393

PATIENT
  Sex: Female
  Weight: 78 kg

DRUGS (1)
  1. NEXPLANON [Suspect]
     Active Substance: ETONOGESTREL
     Indication: CONTRACEPTION
     Dosage: UNK
     Route: 059
     Dates: start: 201203

REACTIONS (8)
  - Oropharyngeal pain [Unknown]
  - Malaise [Unknown]
  - Oligomenorrhoea [Unknown]
  - Dyspnoea [Unknown]
  - Surgery [Unknown]
  - Fracture [Unknown]
  - Anxiety [Unknown]
  - Nerve compression [Unknown]

NARRATIVE: CASE EVENT DATE: 2014
